FAERS Safety Report 4773474-4 (Version None)
Quarter: 2005Q3

REPORT INFORMATION
  Report Type: 
  Country: None (occurrence: None)
  Receive Date: 20050914
  Receipt Date: 20041103
  Transmission Date: 20060218
  Serious: Yes (Death)
  Sender: FDA-Public Use
  Company Number: 163-20785-04110080

PATIENT
  Age: 56 Year
  Sex: Male

DRUGS (4)
  1. THALOMID [Suspect]
     Indication: PANCREATIC CARCINOMA
     Dosage: 100 MG, DAILY, ORAL
     Route: 048
     Dates: start: 20040602, end: 20040914
  2. GEMZAR [Suspect]
     Indication: PANCREATIC CARCINOMA
  3. TAXOTERE [Suspect]
     Indication: PANCREATIC CARCINOMA
  4. XELODA [Suspect]
     Indication: PANCREATIC CARCINOMA

REACTIONS (3)
  - DISEASE PROGRESSION [None]
  - JAUNDICE [None]
  - METASTASES TO LIVER [None]
